FAERS Safety Report 12173502 (Version 2)
Quarter: 2016Q2

REPORT INFORMATION
  Report Type: Spontaneous
  Country: US (occurrence: US)
  Receive Date: 20160311
  Receipt Date: 20160422
  Transmission Date: 20160815
  Serious: Yes (Hospitalization)
  Sender: FDA-Public Use
  Company Number: US-ASTRAZENECA-2016SE25833

PATIENT
  Age: 17187 Day
  Sex: Female
  Weight: 98.9 kg

DRUGS (12)
  1. BENTYL [Concomitant]
     Active Substance: DICYCLOMINE HYDROCHLORIDE
     Indication: ABDOMINAL PAIN
     Dosage: TAKE 1 TABLET (20 MG TOTAL) BY MOUTH EVERY 6 (SIX) HOURS AS NEEDED
     Route: 048
     Dates: start: 20160205, end: 20160317
  2. BYDUREON [Suspect]
     Active Substance: EXENATIDE
     Indication: TYPE 2 DIABETES MELLITUS
     Route: 058
     Dates: start: 20151117, end: 20160224
  3. PROZAC [Concomitant]
     Active Substance: FLUOXETINE HYDROCHLORIDE
     Indication: DEPRESSION
     Dosage: TAKING  ONE CAPSULE DAILY
     Route: 048
     Dates: start: 20160113
  4. DEPO-PROVERA [Concomitant]
     Active Substance: MEDROXYPROGESTERONE ACETATE
     Dosage: 150 MG/ML INJECT 150 MG INTO THE MUSCLE EVERY 3 (THREE) MONTHS
     Route: 030
  5. PRINIVIL [Concomitant]
     Active Substance: LISINOPRIL
     Route: 048
  6. MEVACOR [Concomitant]
     Active Substance: LOVASTATIN
     Indication: HYPERLIPIDAEMIA
     Route: 048
     Dates: start: 20151007
  7. NORCO [Concomitant]
     Active Substance: ACETAMINOPHEN\HYDROCODONE BITARTRATE
     Indication: PAIN
     Dosage: 5-325 MG TAKE 1-2 TABLETS BY MOUTH ONCE EVERY 4 (FOUR) HOURS AS NEEDED FOR PAIN
     Route: 048
     Dates: start: 20160205, end: 20160317
  8. PROZAC [Concomitant]
     Active Substance: FLUOXETINE HYDROCHLORIDE
     Indication: TOXICITY TO VARIOUS AGENTS
     Dosage: TAKING  ONE CAPSULE DAILY
     Route: 048
     Dates: start: 20160113
  9. NOVOLOG [Concomitant]
     Active Substance: INSULIN ASPART
     Dosage: 100 UNIT/ML, 66 UNITS SUB-Q CONTINUOUS USING VGO DEVICE
     Route: 058
     Dates: start: 20160119
  10. ZIAC [Concomitant]
     Active Substance: BISOPROLOL FUMARATE\HYDROCHLOROTHIAZIDE
     Indication: HYPERTENSION
     Dosage: 5 TO 6.25 MG DAILY
     Route: 048
     Dates: start: 20150811, end: 20160317
  11. PRINIVIL [Concomitant]
     Active Substance: LISINOPRIL
     Dosage: ZESTRIL 40MG DAILY
     Route: 048
     Dates: start: 20150811, end: 20160317
  12. ATIVAN [Concomitant]
     Active Substance: LORAZEPAM
     Indication: ANXIETY
     Dosage: 1/2-1 TABLET 3 TIMES DAILY AS NEEDED
     Route: 048
     Dates: start: 20150303, end: 20160317

REACTIONS (4)
  - Nausea [Unknown]
  - Diarrhoea [Unknown]
  - Vomiting [Unknown]
  - Colitis ischaemic [Recovered/Resolved]

NARRATIVE: CASE EVENT DATE: 20160224
